FAERS Safety Report 8097144-2 (Version None)
Quarter: 2012Q1

REPORT INFORMATION
  Report Type: 
  Country: None (occurrence: None)
  Receive Date: 20120129
  Receipt Date: 20111121
  Transmission Date: 20120608
  Serious: No
  Sender: FDA-Public Use
  Company Number: US-ABBOTT-11P-163-0876626-00

PATIENT
  Sex: Female

DRUGS (1)
  1. HUMIRA [Suspect]
     Indication: RHEUMATOID ARTHRITIS
     Route: 058
     Dates: start: 20111029

REACTIONS (4)
  - FLATULENCE [None]
  - ABDOMINAL DISTENSION [None]
  - GASTROINTESTINAL SOUNDS ABNORMAL [None]
  - DIARRHOEA [None]
